FAERS Safety Report 19030081 (Version 1)
Quarter: 2021Q1

REPORT INFORMATION
  Report Type: Spontaneous
  Country: US (occurrence: US)
  Receive Date: 20210319
  Receipt Date: 20210319
  Transmission Date: 20210420
  Serious: Yes (Hospitalization, Other)
  Sender: FDA-Public Use
  Company Number: US-SPECGX-T202100034

PATIENT
  Age: 17 Year
  Sex: Male

DRUGS (12)
  1. OXYCODONE [Suspect]
     Active Substance: OXYCODONE
     Dosage: 37.5 MILLIGRAM, UNK
     Route: 065
     Dates: start: 2019
  2. OXYCODONE [Suspect]
     Active Substance: OXYCODONE
     Indication: PAIN
     Dosage: UNK
     Route: 065
  3. GABAPENTIN. [Concomitant]
     Active Substance: GABAPENTIN
     Indication: PAIN
     Dosage: UNK
     Route: 065
  4. METHADONE [Suspect]
     Active Substance: METHADONE HYDROCHLORIDE
     Dosage: 12.5 MILLIGRAM
     Route: 065
  5. BUPRENORPHINE/NALOXONE [Suspect]
     Active Substance: BUPRENORPHINE\NALOXONE
     Dosage: 1 MG?0.25 MG, QD
     Route: 065
  6. OXYCODONE [Suspect]
     Active Substance: OXYCODONE
     Dosage: TAPERED, UNK
     Route: 065
     Dates: start: 2019
  7. OXYCODONE [Suspect]
     Active Substance: OXYCODONE
     Dosage: INCREASED, UNK
     Route: 065
     Dates: start: 2019
  8. BUPRENORPHINE/NALOXONE [Suspect]
     Active Substance: BUPRENORPHINE\NALOXONE
     Indication: WITHDRAWAL SYNDROME
     Dosage: 6 MG?1.5 MG , QD
     Route: 065
     Dates: start: 201912
  9. OXYCODONE [Suspect]
     Active Substance: OXYCODONE
     Dosage: TAPERED, UNK
     Route: 065
     Dates: start: 2019
  10. METHADONE [Suspect]
     Active Substance: METHADONE HYDROCHLORIDE
     Indication: PAIN
     Dosage: UNK
     Route: 065
  11. OXYCODONE [Suspect]
     Active Substance: OXYCODONE
     Indication: PAIN
     Dosage: UNK
     Route: 065
  12. HYDROXYUREA. [Concomitant]
     Active Substance: HYDROXYUREA
     Indication: SICKLE CELL DISEASE
     Route: 065

REACTIONS (6)
  - Withdrawal syndrome [Unknown]
  - Drug tolerance [Unknown]
  - Condition aggravated [Unknown]
  - Sickle cell disease [Unknown]
  - Migraine [Unknown]
  - Drug dependence [Unknown]
